FAERS Safety Report 21266250 (Version 1)
Quarter: 2022Q3

REPORT INFORMATION
  Report Type: Spontaneous
  Country: US (occurrence: None)
  Receive Date: 20220829
  Receipt Date: 20220829
  Transmission Date: 20221027
  Serious: Yes (Other)
  Sender: FDA-Public Use
  Company Number: None

PATIENT
  Age: 38 Year
  Sex: Female
  Weight: 45.45 kg

DRUGS (7)
  1. MICONAZOLE [Suspect]
     Active Substance: MICONAZOLE
     Indication: Fungal infection
     Dosage: FREQUENCY : TWICE A DAY;?
     Route: 067
     Dates: start: 20220828, end: 20220828
  2. WELLBUTRIN [Concomitant]
     Active Substance: BUPROPION HYDROCHLORIDE
  3. ZOLOFT [Concomitant]
     Active Substance: SERTRALINE HYDROCHLORIDE
  4. LEVOTHYROXINE [Concomitant]
     Active Substance: LEVOTHYROXINE
  5. mircette birth control tablets [Concomitant]
  6. IRON [Concomitant]
     Active Substance: IRON
  7. VITAMINS [Concomitant]
     Active Substance: VITAMINS

REACTIONS (5)
  - Vulvovaginal burning sensation [None]
  - Vulvovaginal pain [None]
  - Application site pain [None]
  - Dysuria [None]
  - Pollakiuria [None]

NARRATIVE: CASE EVENT DATE: 20220828
